FAERS Safety Report 7737757-8 (Version None)
Quarter: 2011Q3

REPORT INFORMATION
  Report Type: 
  Country: None (occurrence: None)
  Receive Date: 20110908
  Receipt Date: 20110906
  Transmission Date: 20111222
  Serious: Yes (Life-Threatening)
  Sender: FDA-Public Use
  Company Number: AU-SANOFI-AVENTIS-2011SA053939

PATIENT
  Sex: Female
  Weight: 100 kg

DRUGS (2)
  1. LANTUS [Suspect]
     Indication: TYPE 2 DIABETES MELLITUS
     Route: 051
  2. SOLOSTAR [Suspect]
     Indication: TYPE 2 DIABETES MELLITUS

REACTIONS (5)
  - THIRST [None]
  - MALAISE [None]
  - SOMNOLENCE [None]
  - HYPERGLYCAEMIA [None]
  - ASTHENIA [None]
